FAERS Safety Report 6626647-X (Version None)
Quarter: 2010Q1

REPORT INFORMATION
  Report Type: 
  Country: None (occurrence: None)
  Receive Date: 20100305
  Receipt Date: 20100222
  Transmission Date: 20100710
  Serious: Yes (Death)
  Sender: FDA-Public Use
  Company Number: 1000012247

PATIENT
  Age: 28 Year
  Sex: Male

DRUGS (1)
  1. CITALOPRAM HYDROBROMIDE [Suspect]

REACTIONS (5)
  - AGGRESSION [None]
  - DRUG TOXICITY [None]
  - FACE INJURY [None]
  - IMPRISONMENT [None]
  - UNRESPONSIVE TO STIMULI [None]
